FAERS Safety Report 7780500-7 (Version None)
Quarter: 2011Q3

REPORT INFORMATION
  Report Type: 
  Country: None (occurrence: None)
  Receive Date: 20110927
  Receipt Date: 20110920
  Transmission Date: 20111222
  Serious: Yes (Other)
  Sender: FDA-Public Use
  Company Number: DE-SANOFI-AVENTIS-2011SA061361

PATIENT
  Age: 76 Year
  Sex: Male

DRUGS (2)
  1. MULTAQ [Suspect]
     Route: 048
     Dates: start: 20101201
  2. ALL OTHER THERAPEUTIC PRODUCTS [Concomitant]
     Route: 065

REACTIONS (2)
  - LIPASE INCREASED [None]
  - BLOOD CREATININE INCREASED [None]
